FAERS Safety Report 10235190 (Version 1)
Quarter: 2014Q2

REPORT INFORMATION
  Report Type: Spontaneous
  Country: ES (occurrence: ES)
  Receive Date: 20140613
  Receipt Date: 20140613
  Transmission Date: 20141212
  Serious: Yes (Other)
  Sender: FDA-Public Use
  Company Number: ES-ROCHE-1416295

PATIENT
  Age: 39 Year
  Sex: Female
  Weight: 73 kg

DRUGS (3)
  1. AVASTIN [Suspect]
     Indication: OVARIAN CANCER
     Dosage: DRUG REPORTED AS AVASTIN 25 MG/ML CONCENTRADO PARA SOLUCION PARA PERFUSION, 1 VIAL DE 1
     Route: 042
     Dates: start: 20131120, end: 20140421
  2. CARBOPLATINO [Concomitant]
     Indication: OVARIAN CANCER
     Route: 042
     Dates: start: 20131022, end: 20140217
  3. PACLITAXEL [Concomitant]
     Indication: OVARIAN CANCER
     Route: 042
     Dates: start: 20131022, end: 20140217

REACTIONS (1)
  - Rheumatoid arthritis [Not Recovered/Not Resolved]
